FAERS Safety Report 11219483 (Version 1)
Quarter: 2015Q2

REPORT INFORMATION
  Report Type: Spontaneous
  Country: CN (occurrence: None)
  Receive Date: 20150624
  Receipt Date: 20150624
  Transmission Date: 20150821
  Serious: Yes (Other)
  Sender: FDA-Public Use
  Company Number: CN-ACCORD-031361

PATIENT

DRUGS (5)
  1. ETOPOSIDE (ETOPOSIDE) [Suspect]
     Active Substance: ETOPOSIDE
     Indication: ANGIOCENTRIC LYMPHOMA
     Dosage: 100-MG/M2-1.00 TIMES PER-3.0 WEEKS/INTRAVENOUS (NOT OTHERWISE SPECIFIED)
     Route: 042
  2. DEXAMETHASONE (DEXAMETHASONE) [Suspect]
     Active Substance: DEXAMETHASONE
     Indication: ANGIOCENTRIC LYMPHOMA
     Dosage: 40-MG-1.00 TIMES PER 3.0 WEEKS/INTRAVENOUS (NOT OTHERWISE SPECIFIED)
     Route: 042
  3. METHOTREXATE (METHOTREXATE) [Suspect]
     Active Substance: METHOTREXATE
     Indication: ANGIOCENTRIC LYMPHOMA
     Dosage: INTRAVENOUS (NOT OTHERWISE SPECIFIED)
     Route: 042
  4. PEGASPARGASE [Suspect]
     Active Substance: PEGASPARGASE
     Indication: ANGIOCENTRIC LYMPHOMA
  5. LEUCOVORIN (LEUCOVORIN) [Suspect]
     Active Substance: LEUCOVORIN
     Indication: ANGIOCENTRIC LYMPHOMA

REACTIONS (1)
  - Pancreatitis [None]
